FAERS Safety Report 11520323 (Version 1)
Quarter: 2015Q3

REPORT INFORMATION
  Report Type: Spontaneous
  Country: US (occurrence: US)
  Receive Date: 20150918
  Receipt Date: 20150918
  Transmission Date: 20151125
  Serious: No
  Sender: FDA-Public Use
  Company Number: US-RB-076217-15

PATIENT

DRUGS (2)
  1. MUCINEX MAXIMUM STRENGTH [Suspect]
     Active Substance: GUAIFENESIN
     Indication: PRODUCT USED FOR UNKNOWN INDICATION
     Dosage: 1200MG. AMOUNT USED: 41 IN TOTAL,BID
     Route: 065
     Dates: start: 20141120
  2. MUCINEX MAXIMUM STRENGTH [Suspect]
     Active Substance: GUAIFENESIN
     Dosage: 600MG. PRODUCT WAS LAST USED ON 10-DEC-2014,FREQUENCY UNK
     Route: 065

REACTIONS (2)
  - Heart rate increased [Recovered/Resolved]
  - Incorrect drug administration duration [Recovered/Resolved]
